FAERS Safety Report 8389083-4 (Version None)
Quarter: 2012Q2

REPORT INFORMATION
  Report Type: 
  Country: None (occurrence: None)
  Receive Date: 20120528
  Receipt Date: 20120521
  Transmission Date: 20120825
  Serious: Yes (Hospitalization)
  Sender: FDA-Public Use
  Company Number: PHEH2012US008549

PATIENT
  Sex: Male
  Weight: 81.633 kg

DRUGS (3)
  1. TYLENOL [Concomitant]
     Dosage: 325 MG, UNK
  2. VITAMIN D [Concomitant]
     Dosage: 1000 IU, UNK
  3. GILENYA [Suspect]
     Dosage: 0.5 MG, QD
     Route: 048

REACTIONS (10)
  - PLATELET COUNT DECREASED [None]
  - ANAEMIA [None]
  - VISION BLURRED [None]
  - PARAESTHESIA [None]
  - AMNESIA [None]
  - CHEST DISCOMFORT [None]
  - HYPOAESTHESIA [None]
  - DISTURBANCE IN ATTENTION [None]
  - VITAMIN D DECREASED [None]
  - MUSCULOSKELETAL DISCOMFORT [None]
